FAERS Safety Report 8400920-7 (Version None)
Quarter: 2012Q2

REPORT INFORMATION
  Report Type: 
  Country: None (occurrence: None)
  Receive Date: 20120601
  Receipt Date: 20120521
  Transmission Date: 20120825
  Serious: Yes (Other)
  Sender: FDA-Public Use
  Company Number: US-PAR PHARMACEUTICAL, INC-2012SCPR004399

PATIENT

DRUGS (2)
  1. TRAMADOL HCL [Suspect]
     Indication: FIBROMYALGIA
     Dosage: 1 TABLET, ONCE DAILY
     Route: 048
     Dates: start: 20110701
  2. TRAMADOL HCL [Suspect]
     Indication: PAIN

REACTIONS (1)
  - HEART RATE DECREASED [None]
